FAERS Safety Report 12067275 (Version 1)
Quarter: 2016Q1

REPORT INFORMATION
  Report Type: Spontaneous
  Country: US (occurrence: None)
  Receive Date: 20160210
  Receipt Date: 20160210
  Transmission Date: 20160526
  Serious: No
  Sender: FDA-Public Use
  Company Number: None

PATIENT
  Age: 25 Year
  Sex: Female
  Weight: 62.14 kg

DRUGS (1)
  1. JUNEL FE 1.5/30 [Suspect]
     Active Substance: ETHINYL ESTRADIOL\NORETHINDRONE ACETATE
     Indication: POLYCYSTIC OVARIES
     Dosage: 1 PILL DAILY, 21 DAY CYCLES ONCE DAILY TAKEN BY MOUTH
     Route: 048
     Dates: start: 20160131

REACTIONS (7)
  - Headache [None]
  - Drug ineffective [None]
  - Acne [None]
  - Muscle spasms [None]
  - Product quality issue [None]
  - Emotional disorder [None]
  - Hair growth abnormal [None]

NARRATIVE: CASE EVENT DATE: 20160131
